FAERS Safety Report 24466221 (Version 2)
Quarter: 2024Q4

REPORT INFORMATION
  Report Type: Spontaneous
  Country: US (occurrence: US)
  Receive Date: 20241018
  Receipt Date: 20241111
  Transmission Date: 20250114
  Serious: Yes (Hospitalization, Other)
  Sender: ABBVIE
  Company Number: US-ABBVIE-5969744

PATIENT
  Sex: Female
  Weight: 1.18 kg

DRUGS (5)
  1. SYNTHROID [Suspect]
     Active Substance: LEVOTHYROXINE SODIUM
     Indication: Maternal exposure timing unspecified
     Route: 064
  2. VITAMIN K [Concomitant]
     Active Substance: PHYTONADIONE
     Indication: Immunisation
     Dosage: VACCINE
     Dates: start: 20240812, end: 20240812
  3. ERYTHROMYCIN [Concomitant]
     Active Substance: ERYTHROMYCIN
     Indication: Immunisation
     Route: 047
     Dates: start: 20240812, end: 20240812
  4. CAFFEINE CITRATE [Concomitant]
     Active Substance: CAFFEINE CITRATE
     Indication: Immunisation
     Dosage: VACCINE
     Dates: start: 20240812, end: 20240812
  5. HUMAN HEPATITIS B VIRUS IMMUNE GLOBULIN [Concomitant]
     Active Substance: HUMAN HEPATITIS B VIRUS IMMUNE GLOBULIN
     Indication: Immunisation
     Dates: start: 20240911

REACTIONS (10)
  - Intensive care [Not Recovered/Not Resolved]
  - Anaemia neonatal [Recovered/Resolved with Sequelae]
  - Neonatal respiratory distress syndrome [Recovered/Resolved]
  - Foetal exposure during pregnancy [Unknown]
  - Hypernatraemia [Unknown]
  - Premature baby [Recovered/Resolved with Sequelae]
  - Enteral nutrition [Unknown]
  - Premature delivery [Unknown]
  - Small for dates baby [Not Recovered/Not Resolved]
  - Neonatal respiratory failure [Recovered/Resolved with Sequelae]

NARRATIVE: CASE EVENT DATE: 20240801
